FAERS Safety Report 6167816-5 (Version None)
Quarter: 2009Q2

REPORT INFORMATION
  Report Type: 
  Country: None (occurrence: None)
  Receive Date: 20090427
  Receipt Date: 20090416
  Transmission Date: 20091009
  Serious: Yes (Other)
  Sender: FDA-Public Use
  Company Number: US-JNJFOC-20090303333

PATIENT
  Sex: Male
  Weight: 5 kg

DRUGS (1)
  1. INFANTS MYLICON [Suspect]
     Indication: FLATULENCE
     Route: 048

REACTIONS (4)
  - CRYING [None]
  - DRUG INEFFECTIVE [None]
  - EXPIRED DRUG ADMINISTERED [None]
  - INGUINAL HERNIA [None]
